FAERS Safety Report 6935769-5 (Version None)
Quarter: 2010Q3

REPORT INFORMATION
  Report Type: 
  Country: None (occurrence: None)
  Receive Date: 20100819
  Receipt Date: 20100819
  Transmission Date: 20110219
  Serious: Yes (Hospitalization)
  Sender: FDA-Public Use
  Company Number: None

PATIENT
  Sex: Female
  Weight: 100 kg

DRUGS (1)
  1. CYTARABINE [Suspect]
     Dosage: 35460 MG
     Dates: end: 20100726

REACTIONS (1)
  - FEBRILE NEUTROPENIA [None]
